FAERS Safety Report 12095391 (Version 1)
Quarter: 2016Q1

REPORT INFORMATION
  Report Type: Spontaneous
  Country: IN (occurrence: IN)
  Receive Date: 20160219
  Receipt Date: 20160219
  Transmission Date: 20160526
  Serious: Yes (Other)
  Sender: FDA-Public Use
  Company Number: PHHY2016IN021025

PATIENT
  Age: 40 Year
  Sex: Female

DRUGS (2)
  1. HEPARIN [Suspect]
     Active Substance: HEPARIN SODIUM
     Indication: PRURITUS
     Route: 061
  2. HEPARIN [Suspect]
     Active Substance: HEPARIN SODIUM
     Indication: CATHETER SITE PAIN

REACTIONS (2)
  - Acute kidney injury [Unknown]
  - Dermatitis contact [Unknown]
